FAERS Safety Report 10079861 (Version 2)
Quarter: 2014Q2

REPORT INFORMATION
  Report Type: Report from Study
  Country: DE (occurrence: DE)
  Receive Date: 20140415
  Receipt Date: 20140519
  Transmission Date: 20141212
  Serious: Yes (Hospitalization)
  Sender: FDA-Public Use
  Company Number: DE-BRISTOL-MYERS SQUIBB COMPANY-20602009

PATIENT
  Age: 75 Year
  Sex: Male

DRUGS (3)
  1. IPILIMUMAB [Suspect]
     Indication: METASTATIC MALIGNANT MELANOMA
     Dosage: TOTAL DOSE 228MG.
     Route: 042
     Dates: start: 20140224
  2. MESTINON [Concomitant]
  3. TRAVATAN [Concomitant]

REACTIONS (1)
  - Metastases to central nervous system [Unknown]
